FAERS Safety Report 7016428-X (Version None)
Quarter: 2010Q3

REPORT INFORMATION
  Report Type: 
  Country: None (occurrence: None)
  Receive Date: 20100927
  Receipt Date: 20100915
  Transmission Date: 20110219
  Serious: Yes (Other)
  Sender: FDA-Public Use
  Company Number: SI-ELI_LILLY_AND_COMPANY-SI201009003748

PATIENT
  Sex: Female

DRUGS (3)
  1. RALOXIFENE HYDROCHLORIDE [Suspect]
     Indication: OSTEOPOROSIS POSTMENOPAUSAL
     Dosage: 60 MG, DAILY (1/D)
     Route: 065
  2. CHOLECALCIFEROL [Concomitant]
     Dosage: 400 IU, DAILY (1/D)
  3. CALCIUM CARBONATE [Concomitant]
     Dosage: 1000 MG, DAILY (1/D)

REACTIONS (1)
  - BREAST CANCER [None]
